FAERS Safety Report 4802326-6 (Version None)
Quarter: 2005Q4

REPORT INFORMATION
  Report Type: 
  Country: None (occurrence: None)
  Receive Date: 20051014
  Receipt Date: 20050131
  Transmission Date: 20060501
  Serious: Yes (Other)
  Sender: FDA-Public Use
  Company Number: 2004062471

PATIENT
  Age: 29 Year
  Sex: Female

DRUGS (6)
  1. NEURONTIN [Suspect]
     Indication: BIPOLAR DISORDER
     Dosage: (800 MG), ORAL
     Route: 048
  2. NEURONTIN [Suspect]
     Indication: DEPRESSION
     Dosage: (800 MG), ORAL
     Route: 048
  3. ETHANOL (ETHANOL) [Suspect]
     Indication: ILL-DEFINED DISORDER
  4. SERTRALINE HCL [Concomitant]
  5. TRAZODONE (TRAZODONE) [Concomitant]
  6. ANTIDEPRESSANTS (ANTIDEPRESSANTS) [Concomitant]

REACTIONS (6)
  - ANXIETY [None]
  - DEPRESSION [None]
  - DRUG ADMINISTRATION ERROR [None]
  - INTENTIONAL DRUG MISUSE [None]
  - INTENTIONAL OVERDOSE [None]
  - SUICIDE ATTEMPT [None]
